FAERS Safety Report 4554944-0 (Version None)
Quarter: 2004Q4

REPORT INFORMATION
  Report Type: 
  Country: None (occurrence: None)
  Receive Date: 20041222
  Receipt Date: 20041025
  Transmission Date: 20050328
  Serious: Yes (Hospitalization)
  Sender: FDA-Public Use
  Company Number: 209947

PATIENT
  Age: 74 Year
  Sex: Male
  Weight: 82.1 kg

DRUGS (7)
  1. AVASTIN [Suspect]
     Indication: COLORECTAL CANCER METASTATIC
     Dosage: 400 MG, Q2W, INTRAVENOUS
     Route: 042
     Dates: start: 20040701
  2. CPT-11 (IRINOTECAN HYDROCHLORIDE) [Concomitant]
  3. FLUOROURACIL [Concomitant]
  4. LEUCOVORIN CALCIUM [Concomitant]
  5. KYTRIL [Concomitant]
  6. DECADRON [Concomitant]
  7. ARANESP [Concomitant]

REACTIONS (2)
  - ANAL FISTULA [None]
  - PERIRECTAL ABSCESS [None]
